FAERS Safety Report 7258593-5 (Version None)
Quarter: 2011Q1

REPORT INFORMATION
  Report Type: 
  Country: None (occurrence: None)
  Receive Date: 20110129
  Receipt Date: 20100512
  Transmission Date: 20110831
  Serious: No
  Sender: FDA-Public Use
  Company Number: US-ABBOTT-10P-163-0645403-00

PATIENT
  Sex: Male
  Weight: 76.272 kg

DRUGS (6)
  1. IBUPROFEN [Concomitant]
  2. UNKNOWN MEDICATION [Concomitant]
     Indication: HYPERTENSION
  3. HUMIRA [Suspect]
     Dates: start: 20090901
  4. HUMIRA [Suspect]
     Indication: RHEUMATOID ARTHRITIS
     Dates: start: 20090401, end: 20090901
  5. IBUPROFEN [Concomitant]
     Indication: ARTHRALGIA
  6. INSULIN [Concomitant]
     Indication: DIABETES MELLITUS

REACTIONS (2)
  - RHEUMATOID ARTHRITIS [None]
  - DRUG INEFFECTIVE [None]
